FAERS Safety Report 8715639 (Version 2)
Quarter: 2012Q4

REPORT INFORMATION
  Report Type: 
  Country: DE (occurrence: DE)
  Receive Date: 20120809
  Receipt Date: 20120928
  Transmission Date: 20130627
  Serious: No
  Sender: FDA-Public Use
  Company Number: DE-ROCHE-1099366

PATIENT
  Sex: Male
  Weight: 89 kg

DRUGS (3)
  1. CAPECITABINE [Suspect]
     Indication: COLORECTAL CANCER
     Dosage: 2x2150 mg
     Route: 048
     Dates: start: 20120704
  2. OXALIPLATIN [Concomitant]
     Indication: COLORECTAL CANCER
     Route: 042
     Dates: start: 20120704
  3. BEVACIZUMAB [Concomitant]
     Indication: COLORECTAL CANCER
     Route: 042
     Dates: start: 20120704

REACTIONS (1)
  - Mucosal inflammation [Recovering/Resolving]
